FAERS Safety Report 23230826 (Version 2)
Quarter: 2023Q4

REPORT INFORMATION
  Report Type: Spontaneous
  Country: US (occurrence: US)
  Receive Date: 20231127
  Receipt Date: 20231218
  Transmission Date: 20240109
  Serious: No
  Sender: FDA-Public Use
  Company Number: US-SA-SAC20231123000215

PATIENT
  Age: 64 Year
  Sex: Male

DRUGS (5)
  1. DUPIXENT [Suspect]
     Active Substance: DUPILUMAB
     Indication: Dermatitis atopic
     Dosage: 300 MG, QOW
     Route: 058
     Dates: start: 20221123
  2. DOXYCYCLINE [Concomitant]
     Active Substance: DOXYCYCLINE
  3. TRIAMCINOLONE [Concomitant]
     Active Substance: TRIAMCINOLONE
  4. VITAMINS NOS [Concomitant]
     Active Substance: VITAMINS
  5. HYDROCODONE BITARTRATE AND ACETAMINOPHEN [Concomitant]
     Active Substance: ACETAMINOPHEN\HYDROCODONE BITARTRATE

REACTIONS (4)
  - Abdominal discomfort [Recovering/Resolving]
  - Dry skin [Recovering/Resolving]
  - Sleep disorder [Recovering/Resolving]
  - Stress [Recovering/Resolving]
